FAERS Safety Report 18474167 (Version 1)
Quarter: 2020Q4

REPORT INFORMATION
  Report Type: Spontaneous
  Country: None (occurrence: US)
  Receive Date: 20201106
  Receipt Date: 20201106
  Transmission Date: 20210114
  Serious: Yes (Other)
  Sender: FDA-Public Use
  Company Number: US-NOVA LABORATORIES LIMITED-2093664

PATIENT
  Age: 3 Year
  Sex: Female
  Weight: 15.88 kg

DRUGS (6)
  1. ONDANSETRON [Concomitant]
     Active Substance: ONDANSETRON
  2. XATMEP [Concomitant]
     Active Substance: METHOTREXATE
  3. LACTULOSE. [Concomitant]
     Active Substance: LACTULOSE
  4. PURIXAN [Suspect]
     Active Substance: MERCAPTOPURINE
     Dates: start: 20190625, end: 20201001
  5. LORAZEPAM. [Concomitant]
     Active Substance: LORAZEPAM
  6. POLYETHYLENE GLYCOL (POLYETHYLENE GLYCOL 3350) [Concomitant]
     Active Substance: POLYETHYLENE GLYCOL 3350

REACTIONS (2)
  - Neutrophil count decreased [Recovered/Resolved]
  - Hepatic enzyme increased [Recovered/Resolved]
